FAERS Safety Report 20010935 (Version 1)
Quarter: 2021Q4

REPORT INFORMATION
  Report Type: Spontaneous
  Country: PT (occurrence: PT)
  Receive Date: 20211029
  Receipt Date: 20211029
  Transmission Date: 20220303
  Serious: Yes (Other)
  Sender: FDA-Public Use
  Company Number: PT-AUROBINDO-AUR-APL-2021-043893

PATIENT
  Age: 34 Year
  Sex: Female

DRUGS (3)
  1. ROPIVACAINE. [Suspect]
     Active Substance: ROPIVACAINE HYDROCHLORIDE
     Indication: Analgesic therapy
     Dosage: 5 MILLILITER (0.2%)
     Route: 065
  2. ROPIVACAINE. [Suspect]
     Active Substance: ROPIVACAINE HYDROCHLORIDE
     Dosage: 10 MILLILITER (0.2 %) (IN THE FOLLOWING 8 HOURS, FOUR MORE BOLUSES)
     Route: 040
  3. FENTANYL [Concomitant]
     Active Substance: FENTANYL
     Indication: Analgesic therapy
     Dosage: 50 MICROGRAM
     Route: 065

REACTIONS (2)
  - Horner^s syndrome [Unknown]
  - Maternal exposure during delivery [Unknown]
